FAERS Safety Report 20676836 (Version 2)
Quarter: 2022Q2

REPORT INFORMATION
  Report Type: Report from Study
  Country: US (occurrence: US)
  Receive Date: 20220406
  Receipt Date: 20220415
  Transmission Date: 20220720
  Serious: Yes (Hospitalization)
  Sender: FDA-Public Use
  Company Number: US-BIOGEN-2022BI01105646

PATIENT
  Age: 50 Year
  Sex: Female
  Weight: 156 kg

DRUGS (27)
  1. TYSABRI [Suspect]
     Active Substance: NATALIZUMAB
     Indication: Multiple sclerosis
     Route: 065
     Dates: start: 20180118, end: 20220107
  2. TYSABRI [Suspect]
     Active Substance: NATALIZUMAB
     Route: 065
     Dates: start: 20220324
  3. TYSABRI [Suspect]
     Active Substance: NATALIZUMAB
     Route: 065
     Dates: start: 2017, end: 20220107
  4. TYLENOL [Concomitant]
     Active Substance: ACETAMINOPHEN
     Indication: Headache
     Dosage: TAKE 650 MG BY MOUTH EVERY 6 HOURS, AS NEEDED FOR HEADACHES, PAIN, OR FEVER
     Route: 048
  5. TYLENOL [Concomitant]
     Active Substance: ACETAMINOPHEN
     Dosage: TAKE 1,000 MG BY MOUTH ONCE A DAY, GIVE AT 10AM BEFORE THERAPY 3GM MAX DAILY
     Route: 048
  6. SYMMETREL [Concomitant]
     Active Substance: AMANTADINE HYDROCHLORIDE
     Indication: Product used for unknown indication
     Dosage: TAKE 100 MG BY MOUTH TWO TIMES A DAY?CONC. 50 MG/5ML
     Route: 048
  7. LAC-HYDRIN [Concomitant]
     Active Substance: AMMONIUM LACTATE
     Indication: Dry skin
     Dosage: 12%, APPLY EXTERNALLY TO AFFECTED AREA TWO TIMES A DAY. RUB IN TO AFFECTED AREA WELL
     Route: 065
  8. VITAMIN C [Concomitant]
     Active Substance: ASCORBIC ACID
     Indication: Product used for unknown indication
     Dosage: TAKE 500 MG BY MOUTH ONCE A DAY WHILE INDWELLING CATHETER IN PLACE
     Route: 048
  9. DULCOLAX NOS [Concomitant]
     Active Substance: BISACODYL OR DOCUSATE SODIUM
     Indication: Constipation
     Dosage: INSERT 10 MG RECTALLY EVERY 24 HOURS AS NEEDED FOR CONSTIPATION (BOWEL PROTOCOL #3)
     Route: 054
  10. NEURONTIN [Concomitant]
     Active Substance: GABAPENTIN
     Indication: Product used for unknown indication
     Dosage: TAKE 300 MG BY MOUTH AT BEDTIME
     Route: 048
  11. SYNTHROID [Concomitant]
     Active Substance: LEVOTHYROXINE SODIUM
     Indication: Product used for unknown indication
     Dosage: TAKE 88 MCG BY MOUTH ONCE A DAY
     Route: 048
  12. LITHIUM [Concomitant]
     Active Substance: LITHIUM
     Indication: Product used for unknown indication
     Dosage: TAKE 900 MG BY MOUTH AT BEDTIME
     Route: 048
  13. MILK OF MAGNESIA [Concomitant]
     Active Substance: MAGNESIUM HYDROXIDE
     Indication: Constipation
     Dosage: 400 MG/5ML. TAKE 2400 MG BY MOUTH EVERY 12 HOURS AS NEEDED FOR CONSTIPATION (GIVE IF NO BM IN LAS...
     Route: 048
  14. TOPROL XL [Concomitant]
     Active Substance: METOPROLOL SUCCINATE
     Indication: Hypertension
     Dosage: TAKE 12.5 MG MOUTH ONCE A DAY
     Route: 048
  15. TOPROL XL [Concomitant]
     Active Substance: METOPROLOL SUCCINATE
     Dosage: TAKE 1 TABLET BY MOUTH ONCE A DAY
     Route: 048
  16. TOPROL XL [Concomitant]
     Active Substance: METOPROLOL SUCCINATE
     Dosage: TAKE 1 TABLET BY MOUTH ONCE A DAY
     Route: 048
  17. FLEET MINERAL OIL [Concomitant]
     Active Substance: MINERAL OIL
     Indication: Constipation
     Dosage: INSERT 133ML RECTALLY EVERY 24 HRS AS NEEDED
     Route: 054
  18. NICORETTE [Concomitant]
     Active Substance: NICOTINE
     Indication: Smoking cessation therapy
     Dosage: TAKE 1 EACH BY MOUTH EVERY 4 HOURS AS NEEDED
     Route: 048
  19. DITROPAN [Concomitant]
     Active Substance: OXYBUTYNIN CHLORIDE
     Indication: Bladder spasm
     Dosage: TAKE 5 MG BY MOUTH THREE TIMES A DAY
     Route: 048
  20. INVEGA [Concomitant]
     Active Substance: PALIPERIDONE
     Indication: Product used for unknown indication
     Dosage: TAKE 3 MG BY MOUTH ONCE A DAY WITH BREAKFAST
     Route: 048
  21. INVEGA [Concomitant]
     Active Substance: PALIPERIDONE
     Dosage: TAKE 12 MG BY MOUTH AT BEDTIME
     Route: 048
  22. MIRALAX [Concomitant]
     Active Substance: POLYETHYLENE GLYCOL 3350
     Indication: Constipation
     Dosage: TAKE 17G BY MOUTH 2 TIMES A DAY AS NEEDED. MIX IN 8 OUNCES OF FLUID
     Route: 048
  23. XARELTO [Concomitant]
     Active Substance: RIVAROXABAN
     Indication: Thrombosis prophylaxis
     Dosage: TAKE 15 MG BY MOUTH ONCE A DAY
     Route: 048
  24. SENNA PLUS [Concomitant]
     Active Substance: DOCUSATE SODIUM\SENNOSIDES\SENNOSIDES A AND B
     Indication: Constipation
     Dosage: 8.6-50 MG/TAB TAKE 1 TABLET BY MOUTH AT BEDTIME
     Route: 048
  25. ALDACTONE [Concomitant]
     Active Substance: SPIRONOLACTONE
     Indication: Oedema
     Dosage: TAKE 50 MG BY MOUTH TWO TIMES A DAY
     Route: 048
  26. DEMADEX [Concomitant]
     Active Substance: TORSEMIDE
     Indication: Product used for unknown indication
     Dosage: TAKE 20 MG BY MOUTH ONCE A DAY
     Route: 048
  27. THORAZINE [Concomitant]
     Active Substance: CHLORPROMAZINE
     Indication: Insomnia
     Dosage: TAKE 2 TABLETS BY MOUTH EVERY BEDTIME AS NEEDED
     Route: 048

REACTIONS (4)
  - Urosepsis [Recovered/Resolved]
  - Escherichia urinary tract infection [Recovered/Resolved]
  - Septic encephalopathy [Recovered/Resolved]
  - Neurogenic bladder [Unknown]

NARRATIVE: CASE EVENT DATE: 20220310
